FAERS Safety Report 9463209 (Version 1)
Quarter: 2013Q3

REPORT INFORMATION
  Report Type: Spontaneous
  Country: NO (occurrence: NO)
  Receive Date: 20130818
  Receipt Date: 20130818
  Transmission Date: 20140515
  Serious: Yes (Hospitalization)
  Sender: FDA-Public Use
  Company Number: PHHY2013NO085699

PATIENT
  Age: 81 Year
  Sex: Female

DRUGS (1)
  1. METHOTREXATE [Suspect]
     Dosage: 10 MG, QD
     Route: 048
     Dates: start: 20121031, end: 20121122

REACTIONS (8)
  - Incorrect dose administered [Recovered/Resolved]
  - Liver function test abnormal [Recovered/Resolved]
  - Skin graft rejection [Recovered/Resolved]
  - Decreased appetite [Recovered/Resolved]
  - Leukopenia [Recovered/Resolved]
  - Stomatitis [Recovered/Resolved]
  - Abdominal pain upper [Recovered/Resolved]
  - Overdose [Recovered/Resolved]
